FAERS Safety Report 6241290-2 (Version None)
Quarter: 2009Q2

REPORT INFORMATION
  Report Type: 
  Country: None (occurrence: None)
  Receive Date: 20090619
  Receipt Date: 20090619
  Transmission Date: 20091009
  Serious: No
  Sender: FDA-Public Use
  Company Number: None

PATIENT
  Age: 38 Year
  Sex: Male
  Weight: 100.2449 kg

DRUGS (1)
  1. ZICAM NASAL GEL MATRIXX INITIATIVES [Suspect]
     Indication: LOWER RESPIRATORY TRACT INFECTION
     Dosage: 1 SQUIRT, EACH NOSTRIL 2  NASAL
     Route: 045
     Dates: start: 20081028, end: 20081029

REACTIONS (3)
  - ANOSMIA [None]
  - DYSGEUSIA [None]
  - NASAL DISCOMFORT [None]
